FAERS Safety Report 6182315-2 (Version None)
Quarter: 2009Q2

REPORT INFORMATION
  Report Type: 
  Country: None (occurrence: None)
  Receive Date: 20090505
  Receipt Date: 20090505
  Transmission Date: 20091009
  Serious: Yes (Other)
  Sender: FDA-Public Use
  Company Number: None

PATIENT
  Age: 51 Year
  Sex: Female
  Weight: 69.8539 kg

DRUGS (3)
  1. LEXAPRO [Suspect]
     Indication: BIPOLAR DISORDER
     Dates: start: 20090418, end: 20090423
  2. LEXAPRO [Suspect]
     Indication: MAJOR DEPRESSION
     Dates: start: 20090418, end: 20090423
  3. LEXAPRO [Suspect]
     Indication: MANIA
     Dates: start: 20090418, end: 20090423

REACTIONS (3)
  - INSOMNIA [None]
  - OBSESSIVE THOUGHTS [None]
  - SUICIDAL IDEATION [None]
